FAERS Safety Report 4841867-2 (Version None)
Quarter: 2005Q4

REPORT INFORMATION
  Report Type: 
  Country: None (occurrence: None)
  Receive Date: 20051130
  Receipt Date: 20050920
  Transmission Date: 20060501
  Serious: No
  Sender: FDA-Public Use
  Company Number: US-GLAXOSMITHKLINE-A0575026A

PATIENT
  Age: 60 Year
  Sex: Female

DRUGS (8)
  1. WELLBUTRIN XL [Suspect]
     Indication: DEPRESSION
     Dosage: 150MG PER DAY
     Route: 048
     Dates: start: 20050501, end: 20050912
  2. TRAZODONE [Concomitant]
  3. LEVOXYL [Concomitant]
     Route: 065
  4. LISINOPRIL [Concomitant]
  5. CELEBREX [Concomitant]
  6. PREMARIN [Concomitant]
  7. HYDROCHLOROTHIAZIDE [Concomitant]
  8. HYDROXYCHLOROQUINE SULFATE [Concomitant]

REACTIONS (1)
  - HOT FLUSH [None]
